FAERS Safety Report 10345104 (Version 1)
Quarter: 2014Q3

REPORT INFORMATION
  Report Type: Spontaneous
  Country: SA (occurrence: None)
  Receive Date: 20140723
  Receipt Date: 20140723
  Transmission Date: 20150326
  Serious: Yes (Death)
  Sender: FDA-Public Use
  Company Number: 2444950

PATIENT

DRUGS (5)
  1. CYCLOPHOSPHAMIDE. [Suspect]
     Active Substance: CYCLOPHOSPHAMIDE
     Dosage: NOT REPORTED, UNKNOWN, TRANSPLACENTAL
     Route: 064
  2. PREDNISONE. [Suspect]
     Active Substance: PREDNISONE
     Dosage: NOT REPORTED, UNKNOWN, TRANSPLACENTAL
     Route: 064
  3. ADRIAMYCIN [Suspect]
     Active Substance: DOXORUBICIN HYDROCHLORIDE
     Dosage: NOT REPORTED, UNKNOWN, TRANSPLACENTAL ?
     Route: 064
  4. L-ASPARAGINASE [Suspect]
     Active Substance: ASPARAGINASE
     Dosage: NOT REPORTED, UNKNOWN, TRANSPLACENTAL
     Route: 064
  5. VINCRISTINE SULFATE. [Suspect]
     Active Substance: VINCRISTINE SULFATE
     Dosage: NOT REPORTED, UNKNOWN, TRANSPLACENTAL ?
     Route: 064

REACTIONS (2)
  - Maternal drugs affecting foetus [None]
  - Foetal death [None]
